FAERS Safety Report 18049889 (Version 1)
Quarter: 2020Q3

REPORT INFORMATION
  Report Type: Spontaneous
  Country: CA (occurrence: CA)
  Receive Date: 20200721
  Receipt Date: 20200721
  Transmission Date: 20201103
  Serious: Yes (Hospitalization)
  Sender: FDA-Public Use
  Company Number: CA-TEVA-2020-CA-1801968

PATIENT
  Age: 87 Year
  Sex: Female
  Weight: 54 kg

DRUGS (10)
  1. ELIQUIS [Concomitant]
     Active Substance: APIXABAN
  2. TYLENOL [Concomitant]
     Active Substance: ACETAMINOPHEN
  3. METOPROLOL. [Suspect]
     Active Substance: METOPROLOL
     Indication: ATRIAL FIBRILLATION
     Dosage: 150 MILLIGRAM DAILY;
     Route: 048
  4. ATIVAN [Concomitant]
     Active Substance: LORAZEPAM
  5. CALCIUM [Concomitant]
     Active Substance: CALCIUM
  6. CELEXA [Concomitant]
     Active Substance: CITALOPRAM HYDROBROMIDE
  7. SANDOZ AMLODIPINE [Suspect]
     Active Substance: AMLODIPINE MALEATE
     Indication: HYPERTENSION
     Dosage: 2.5 MILLIGRAM DAILY;
     Route: 048
  8. XALATAN [Concomitant]
     Active Substance: LATANOPROST
  9. LOSEC [Concomitant]
     Active Substance: OMEPRAZOLE
  10. D?TABS [Concomitant]
     Active Substance: CHOLECALCIFEROL

REACTIONS (3)
  - Orthostatic hypotension [Recovered/Resolved]
  - Facial bones fracture [Recovered/Resolved]
  - Fall [Recovered/Resolved]
